FAERS Safety Report 8463966-9 (Version None)
Quarter: 2012Q2

REPORT INFORMATION
  Report Type: 
  Country: None (occurrence: None)
  Receive Date: 20120625
  Receipt Date: 20120618
  Transmission Date: 20120825
  Serious: Yes (Disabling, Other)
  Sender: FDA-Public Use
  Company Number: US-ABBOTT-12P-163-0925243-00

PATIENT
  Sex: Female

DRUGS (2)
  1. ADVAIR DISKUS 100/50 [Concomitant]
     Indication: ASTHMA
  2. HUMIRA [Suspect]
     Indication: PSORIASIS
     Dates: start: 20090406

REACTIONS (2)
  - TINNITUS [None]
  - DEAFNESS [None]
